FAERS Safety Report 12587019 (Version 2)
Quarter: 2016Q3

REPORT INFORMATION
  Report Type: Spontaneous
  Country: CN (occurrence: CN)
  Receive Date: 20160725
  Receipt Date: 20160729
  Transmission Date: 20161109
  Serious: Yes (Other)
  Sender: FDA-Public Use
  Company Number: CN-BAYER-2016-139541

PATIENT
  Sex: Male

DRUGS (2)
  1. NEXAVAR [Suspect]
     Active Substance: SORAFENIB
     Indication: HEPATOCELLULAR CARCINOMA
     Dosage: UNK
     Route: 048
     Dates: start: 2010, end: 2012
  2. NEXAVAR [Suspect]
     Active Substance: SORAFENIB
     Indication: HEPATOCELLULAR CARCINOMA
     Dosage: UNK
     Route: 048
     Dates: start: 201606

REACTIONS (10)
  - Peripheral swelling [Recovered/Resolved]
  - Hair colour changes [Unknown]
  - Blood pressure increased [Unknown]
  - Adverse reaction [None]
  - Palmar-plantar erythrodysaesthesia syndrome [Unknown]
  - Hair colour changes [None]
  - Ascites [Recovered/Resolved]
  - Hiccups [None]
  - Vomiting [None]
  - Abdominal discomfort [None]
